APPROVED DRUG PRODUCT: LEVETIRACETAM IN SODIUM CHLORIDE
Active Ingredient: LEVETIRACETAM
Strength: 1GM/100ML (10MG/ML)
Dosage Form/Route: INJECTABLE;INTRAVENOUS
Application: A211356 | Product #002 | TE Code: AP
Applicant: HIKMA PHARMACEUTICALS USA INC
Approved: Feb 12, 2024 | RLD: No | RS: No | Type: RX